FAERS Safety Report 20863520 (Version 1)
Quarter: 2022Q2

REPORT INFORMATION
  Report Type: Spontaneous
  Country: None (occurrence: SE)
  Receive Date: 20220523
  Receipt Date: 20220523
  Transmission Date: 20220720
  Serious: Yes (Other)
  Sender: FDA-Public Use
  Company Number: SE-HILL DERMACEUTICALS, INC.-2129077

PATIENT
  Age: 87 Year
  Sex: Female

DRUGS (1)
  1. TOLAK [Suspect]
     Active Substance: FLUOROURACIL
     Dates: end: 20220408

REACTIONS (1)
  - Infected skin ulcer [Unknown]
